FAERS Safety Report 5429084-9 (Version None)
Quarter: 2007Q3

REPORT INFORMATION
  Report Type: 
  Country: None (occurrence: None)
  Receive Date: 20070731
  Receipt Date: 20070426
  Transmission Date: 20080115
  Serious: No
  Sender: FDA-Public Use
  Company Number: US200704006218

PATIENT
  Age: 83 Year
  Sex: Female

DRUGS (4)
  1. BYETTA [Suspect]
     Indication: TYPE 2 DIABETES MELLITUS
     Dosage: 5 UG, 2/D, SUBCUTANEOUS
     Route: 058
     Dates: start: 20070405, end: 20070101
  2. METFORMIN HCL [Concomitant]
  3. GLUCOTROL [Concomitant]
  4. ACTOS [Concomitant]

REACTIONS (6)
  - ANOREXIA [None]
  - FEELING ABNORMAL [None]
  - GAIT DISTURBANCE [None]
  - HYPOGLYCAEMIA [None]
  - NAUSEA [None]
  - SOMNOLENCE [None]
